FAERS Safety Report 14979516 (Version 2)
Quarter: 2018Q2

REPORT INFORMATION
  Report Type: Spontaneous
  Country: US (occurrence: US)
  Receive Date: 20180606
  Receipt Date: 20180612
  Transmission Date: 20180711
  Serious: Yes (Other)
  Sender: FDA-Public Use
  Company Number: US-PFIZER INC-2018225016

PATIENT
  Age: 47 Year
  Sex: Female

DRUGS (2)
  1. GABAPENTIN. [Suspect]
     Active Substance: GABAPENTIN
     Indication: PROCEDURAL PAIN
     Dosage: 600 MG, 3X/DAY
  2. GABAPENTIN. [Suspect]
     Active Substance: GABAPENTIN
     Dosage: 800 MG, 3X/DAY

REACTIONS (6)
  - Encephalopathy [Unknown]
  - Product use in unapproved indication [Unknown]
  - Toxicity to various agents [Unknown]
  - Myoclonus [Recovered/Resolved]
  - Respiratory depression [Recovered/Resolved]
  - Depression [Recovered/Resolved]
